FAERS Safety Report 5125273-1 (Version None)
Quarter: 2006Q4

REPORT INFORMATION
  Report Type: 
  Country: None (occurrence: None)
  Receive Date: 20061006
  Receipt Date: 20060924
  Transmission Date: 20070319
  Serious: Yes (Other)
  Sender: FDA-Public Use
  Company Number: 2006114153

PATIENT
  Age: 101 Year
  Sex: Female
  Weight: 49.8957 kg

DRUGS (2)
  1. BENADRYL [Suspect]
     Indication: INSOMNIA
     Dosage: ONE STRIP 3 TIMES, ORAL
     Route: 048
     Dates: start: 20060923, end: 20060923
  2. ASPIRIN [Concomitant]

REACTIONS (4)
  - HALLUCINATION, VISUAL [None]
  - INSOMNIA [None]
  - SOMNOLENCE [None]
  - SPEECH DISORDER [None]
